FAERS Safety Report 9702835 (Version 2)
Quarter: 2013Q4

REPORT INFORMATION
  Report Type: Spontaneous
  Country: DE (occurrence: DE)
  Receive Date: 20131121
  Receipt Date: 20131219
  Transmission Date: 20140711
  Serious: Yes (Life-Threatening)
  Sender: FDA-Public Use
  Company Number: DE-GLAXOSMITHKLINE-D0081766A

PATIENT
  Age: 74 Year
  Sex: Male
  Weight: 110 kg

DRUGS (8)
  1. REVOLADE [Suspect]
     Indication: IMMUNE THROMBOCYTOPENIC PURPURA
     Dosage: 50MG IN THE MORNING
     Route: 048
     Dates: start: 20130614, end: 20130902
  2. HYDROCHLOROTHIAZIDE + RAMIPRIL [Concomitant]
     Indication: HYPERTENSION
     Dosage: 30MG IN THE MORNING
     Route: 048
  3. PANTOZOL [Concomitant]
     Indication: PROPHYLAXIS
     Dosage: 40MG IN THE MORNING
     Route: 048
  4. PROPRANOLOL [Concomitant]
     Dosage: 40MG IN THE MORNING
     Route: 048
  5. AMLODIPIN [Concomitant]
     Indication: HYPERTENSION
     Dosage: 10MG IN THE MORNING
     Route: 048
  6. TOREM [Concomitant]
     Indication: HYPERTENSION
     Dosage: 10MG IN THE MORNING
     Route: 048
  7. INSULIN [Concomitant]
     Indication: TYPE 2 DIABETES MELLITUS
     Route: 058
  8. NPLATE [Concomitant]
     Indication: IMMUNE THROMBOCYTOPENIC PURPURA
     Route: 058

REACTIONS (2)
  - Agranulocytosis [Recovered/Resolved]
  - Neutropenia [Recovered/Resolved]
